FAERS Safety Report 5957531-2 (Version None)
Quarter: 2008Q4

REPORT INFORMATION
  Report Type: 
  Country: None (occurrence: None)
  Receive Date: 20081110
  Receipt Date: 20081022
  Transmission Date: 20090506
  Serious: Yes (Other)
  Sender: FDA-Public Use
  Company Number: B0544269A

PATIENT
  Age: 28 Year
  Sex: Female

DRUGS (3)
  1. ACYCLOVIR [Suspect]
     Indication: ANTIVIRAL PROPHYLAXIS
     Dosage: 420 MG; INTRAVENOUS
     Route: 042
     Dates: start: 20080501, end: 20080501
  2. ZOFRAN [Suspect]
     Dosage: 4 MG, INTRAVENOUS
     Route: 042
     Dates: start: 20080501
  3. METOTREXATE [Concomitant]

REACTIONS (3)
  - COMA [None]
  - INFUSION RELATED REACTION [None]
  - SENSATION OF HEAVINESS [None]
